FAERS Safety Report 15010191 (Version 1)
Quarter: 2018Q2

REPORT INFORMATION
  Report Type: Spontaneous
  Country: US (occurrence: US)
  Receive Date: 20180614
  Receipt Date: 20180614
  Transmission Date: 20180711
  Serious: Yes (Other)
  Sender: FDA-Public Use
  Company Number: US-ASTRAZENECA-2018SE75238

PATIENT
  Sex: Female

DRUGS (2)
  1. IBRANCE [Suspect]
     Active Substance: PALBOCICLIB
     Indication: BREAST CANCER FEMALE
     Route: 048
     Dates: start: 20180509
  2. FASLODEX [Suspect]
     Active Substance: FULVESTRANT
     Route: 030

REACTIONS (9)
  - Thrombocytopenia [Unknown]
  - Asthenia [Unknown]
  - Injection site mass [Unknown]
  - Decreased appetite [Unknown]
  - Paracentesis [Unknown]
  - Abdominal pain [Unknown]
  - Leukopenia [Unknown]
  - Herpes zoster [Unknown]
  - Neutropenia [Unknown]
